FAERS Safety Report 23872452 (Version 6)
Quarter: 2025Q1

REPORT INFORMATION
  Report Type: Spontaneous
  Country: CA (occurrence: CA)
  Receive Date: 20240520
  Receipt Date: 20250106
  Transmission Date: 20250409
  Serious: Yes (Death, Life-Threatening, Hospitalization, Disabling, Other)
  Sender: NOVARTIS
  Company Number: CA-002147023-NVSC2024CA101302

PATIENT
  Age: 44 Year
  Sex: Female

DRUGS (454)
  1. VOLTAREN [Suspect]
     Active Substance: DICLOFENAC SODIUM
     Indication: Product used for unknown indication
     Dosage: 50 MG, QD
     Route: 058
  2. VOLTAREN [Suspect]
     Active Substance: DICLOFENAC SODIUM
     Route: 058
  3. VOLTAREN [Suspect]
     Active Substance: DICLOFENAC SODIUM
     Route: 058
  4. VOLTAREN [Suspect]
     Active Substance: DICLOFENAC SODIUM
     Route: 058
  5. VOLTAREN [Suspect]
     Active Substance: DICLOFENAC SODIUM
     Route: 047
  6. VOLTAREN [Suspect]
     Active Substance: DICLOFENAC SODIUM
     Route: 048
  7. VOLTAREN [Suspect]
     Active Substance: DICLOFENAC SODIUM
     Route: 065
  8. DICLOFENAC SODIUM [Suspect]
     Active Substance: DICLOFENAC SODIUM
     Indication: Product used for unknown indication
     Route: 058
  9. DICLOFENAC SODIUM [Suspect]
     Active Substance: DICLOFENAC SODIUM
     Dosage: 50 MG, QD
     Route: 058
  10. DICLOFENAC SODIUM [Suspect]
     Active Substance: DICLOFENAC SODIUM
     Route: 048
  11. DICLOFENAC SODIUM [Suspect]
     Active Substance: DICLOFENAC SODIUM
     Route: 065
  12. DICLOFENAC SODIUM [Suspect]
     Active Substance: DICLOFENAC SODIUM
     Route: 058
  13. DICLOFENAC SODIUM [Suspect]
     Active Substance: DICLOFENAC SODIUM
     Route: 058
  14. DICLOFENAC SODIUM [Suspect]
     Active Substance: DICLOFENAC SODIUM
     Route: 065
  15. DICLOFENAC SODIUM [Suspect]
     Active Substance: DICLOFENAC SODIUM
     Route: 065
  16. DICLOFENAC SODIUM [Suspect]
     Active Substance: DICLOFENAC SODIUM
     Route: 047
  17. ADALIMUMAB [Suspect]
     Active Substance: ADALIMUMAB
     Indication: Psoriatic arthropathy
     Route: 058
  18. ADALIMUMAB [Suspect]
     Active Substance: ADALIMUMAB
     Route: 058
  19. ADALIMUMAB [Suspect]
     Active Substance: ADALIMUMAB
     Route: 048
  20. LEFLUNOMIDE [Suspect]
     Active Substance: LEFLUNOMIDE
     Indication: Rheumatoid arthritis
     Route: 048
  21. LEFLUNOMIDE [Suspect]
     Active Substance: LEFLUNOMIDE
     Route: 065
  22. LEFLUNOMIDE [Suspect]
     Active Substance: LEFLUNOMIDE
     Route: 048
  23. LEFLUNOMIDE [Suspect]
     Active Substance: LEFLUNOMIDE
     Route: 065
  24. METHOTREXATE [Suspect]
     Active Substance: METHOTREXATE
     Indication: Rheumatoid arthritis
     Route: 013
  25. METHOTREXATE [Suspect]
     Active Substance: METHOTREXATE
     Dosage: 2 G, QD
     Route: 048
  26. METHOTREXATE [Suspect]
     Active Substance: METHOTREXATE
     Route: 048
  27. METHOTREXATE [Suspect]
     Active Substance: METHOTREXATE
     Route: 048
  28. METHOTREXATE [Suspect]
     Active Substance: METHOTREXATE
     Route: 058
  29. METHOTREXATE [Suspect]
     Active Substance: METHOTREXATE
     Dosage: 500 MG, BID
     Route: 065
  30. METHOTREXATE [Suspect]
     Active Substance: METHOTREXATE
     Dosage: 500 MG, BID
     Route: 065
  31. METHOTREXATE [Suspect]
     Active Substance: METHOTREXATE
     Route: 065
  32. METHOTREXATE [Suspect]
     Active Substance: METHOTREXATE
     Route: 048
  33. METHOTREXATE [Suspect]
     Active Substance: METHOTREXATE
     Route: 058
  34. METHOTREXATE [Suspect]
     Active Substance: METHOTREXATE
     Route: 065
  35. METHOTREXATE [Suspect]
     Active Substance: METHOTREXATE
     Route: 048
  36. METHOTREXATE [Suspect]
     Active Substance: METHOTREXATE
     Dosage: 20 MG, QW
     Route: 058
  37. METHOTREXATE [Suspect]
     Active Substance: METHOTREXATE
     Dosage: 25 MG, QD
     Route: 058
  38. METHOTREXATE [Suspect]
     Active Substance: METHOTREXATE
     Route: 013
  39. METHOTREXATE [Suspect]
     Active Substance: METHOTREXATE
     Route: 013
  40. METHOTREXATE [Suspect]
     Active Substance: METHOTREXATE
     Route: 048
  41. METHOTREXATE [Suspect]
     Active Substance: METHOTREXATE
     Dosage: 2 DOSAGE FORM, QD
     Route: 048
  42. METHOTREXATE [Suspect]
     Active Substance: METHOTREXATE
     Route: 048
  43. METHOTREXATE [Suspect]
     Active Substance: METHOTREXATE
     Dosage: 25 MG, QW
     Route: 037
  44. METHOTREXATE [Suspect]
     Active Substance: METHOTREXATE
     Dosage: 25 MG, QW
     Route: 048
  45. METHOTREXATE [Suspect]
     Active Substance: METHOTREXATE
     Dosage: 25 MG, QD
     Route: 058
  46. METHOTREXATE [Suspect]
     Active Substance: METHOTREXATE
     Dosage: 20 MG, QD
     Route: 058
  47. METHOTREXATE [Suspect]
     Active Substance: METHOTREXATE
     Dosage: 15 MG, QD
     Route: 048
  48. METHOTREXATE [Suspect]
     Active Substance: METHOTREXATE
     Dosage: 25 MG, QD
     Route: 065
  49. METHOTREXATE [Suspect]
     Active Substance: METHOTREXATE
     Route: 048
  50. METHOTREXATE [Suspect]
     Active Substance: METHOTREXATE
     Dosage: 20 MG, QD
     Route: 048
  51. METHOTREXATE [Suspect]
     Active Substance: METHOTREXATE
     Route: 048
  52. METHOTREXATE [Suspect]
     Active Substance: METHOTREXATE
     Route: 048
  53. METHOTREXATE [Suspect]
     Active Substance: METHOTREXATE
     Route: 048
  54. METHOTREXATE [Suspect]
     Active Substance: METHOTREXATE
     Route: 065
  55. METHOTREXATE [Suspect]
     Active Substance: METHOTREXATE
     Route: 058
  56. METHOTREXATE [Suspect]
     Active Substance: METHOTREXATE
     Route: 048
  57. METHOTREXATE [Suspect]
     Active Substance: METHOTREXATE
     Route: 048
  58. METHOTREXATE [Suspect]
     Active Substance: METHOTREXATE
     Route: 058
  59. METHOTREXATE [Suspect]
     Active Substance: METHOTREXATE
     Route: 065
  60. METHOTREXATE [Suspect]
     Active Substance: METHOTREXATE
     Route: 065
  61. METHOTREXATE [Suspect]
     Active Substance: METHOTREXATE
     Route: 065
  62. METHOTREXATE [Suspect]
     Active Substance: METHOTREXATE
     Route: 048
  63. METHOTREXATE [Suspect]
     Active Substance: METHOTREXATE
     Route: 048
  64. METHOTREXATE [Suspect]
     Active Substance: METHOTREXATE
     Route: 048
  65. METHOTREXATE [Suspect]
     Active Substance: METHOTREXATE
     Route: 013
  66. METHOTREXATE [Suspect]
     Active Substance: METHOTREXATE
     Route: 048
  67. METHOTREXATE [Suspect]
     Active Substance: METHOTREXATE
     Route: 048
  68. METHOTREXATE [Suspect]
     Active Substance: METHOTREXATE
     Route: 065
  69. METHOTREXATE [Suspect]
     Active Substance: METHOTREXATE
     Route: 048
  70. ACETAMINOPHEN\CODEINE PHOSPHATE [Suspect]
     Active Substance: ACETAMINOPHEN\CODEINE PHOSPHATE
     Indication: Rheumatoid arthritis
     Route: 065
  71. ACTEMRA [Suspect]
     Active Substance: TOCILIZUMAB
     Indication: Rheumatoid arthritis
     Route: 042
  72. ACTEMRA [Suspect]
     Active Substance: TOCILIZUMAB
     Route: 042
  73. ACTEMRA [Suspect]
     Active Substance: TOCILIZUMAB
     Route: 042
  74. ACTEMRA [Suspect]
     Active Substance: TOCILIZUMAB
     Route: 042
  75. ACTEMRA [Suspect]
     Active Substance: TOCILIZUMAB
     Route: 042
  76. ACTEMRA [Suspect]
     Active Substance: TOCILIZUMAB
     Route: 042
  77. ACTEMRA [Suspect]
     Active Substance: TOCILIZUMAB
     Route: 065
  78. ACTEMRA [Suspect]
     Active Substance: TOCILIZUMAB
     Route: 065
  79. ACTEMRA [Suspect]
     Active Substance: TOCILIZUMAB
     Route: 065
  80. ACTEMRA [Suspect]
     Active Substance: TOCILIZUMAB
     Route: 042
  81. ACTEMRA [Suspect]
     Active Substance: TOCILIZUMAB
     Route: 042
  82. ACTEMRA [Suspect]
     Active Substance: TOCILIZUMAB
     Route: 042
  83. ACTEMRA [Suspect]
     Active Substance: TOCILIZUMAB
     Route: 042
  84. ACTEMRA [Suspect]
     Active Substance: TOCILIZUMAB
     Route: 042
  85. ACTEMRA [Suspect]
     Active Substance: TOCILIZUMAB
     Route: 042
  86. ACTEMRA [Suspect]
     Active Substance: TOCILIZUMAB
     Route: 042
  87. PREDNISONE [Suspect]
     Active Substance: PREDNISONE
     Indication: Rheumatoid arthritis
     Route: 065
  88. PREDNISONE [Suspect]
     Active Substance: PREDNISONE
     Route: 048
  89. PREDNISONE [Suspect]
     Active Substance: PREDNISONE
     Route: 048
  90. PREDNISONE [Suspect]
     Active Substance: PREDNISONE
     Route: 065
  91. APREMILAST [Suspect]
     Active Substance: APREMILAST
     Indication: Product used for unknown indication
     Route: 065
  92. APREMILAST [Suspect]
     Active Substance: APREMILAST
     Route: 042
  93. APREMILAST [Suspect]
     Active Substance: APREMILAST
     Route: 042
  94. ARAVA [Suspect]
     Active Substance: LEFLUNOMIDE
     Indication: Rheumatoid arthritis
     Dosage: 20 MG, QD (1 EVERY 1 DAYS)
     Route: 048
  95. MINERALS\VITAMINS [Suspect]
     Active Substance: MINERALS\VITAMINS
     Indication: Product used for unknown indication
     Route: 065
  96. CALCIUM CARBONATE [Suspect]
     Active Substance: CALCIUM CARBONATE
     Indication: Product used for unknown indication
     Route: 065
  97. CALCIUM GLUBIONATE [Suspect]
     Active Substance: CALCIUM GLUBIONATE
     Indication: Product used for unknown indication
     Route: 065
  98. CELEBREX [Suspect]
     Active Substance: CELECOXIB
     Indication: Product used for unknown indication
     Route: 065
  99. CELEBREX [Suspect]
     Active Substance: CELECOXIB
     Dosage: 2 DOSAGE FORM QD (1 EVERY 1 DAYS)
     Route: 065
  100. CELECOXIB [Suspect]
     Active Substance: CELECOXIB
     Indication: Product used for unknown indication
     Route: 065
  101. CELECOXIB [Suspect]
     Active Substance: CELECOXIB
     Dosage: 1 DOSAGE FORM QD (1 EVERY 1 DAYS)
     Route: 065
  102. CERTOLIZUMAB PEGOL [Suspect]
     Active Substance: CERTOLIZUMAB PEGOL
     Indication: Product used for unknown indication
     Route: 065
  103. CETIRIZINE HYDROCHLORIDE [Suspect]
     Active Substance: CETIRIZINE HYDROCHLORIDE
     Indication: Rheumatoid arthritis
     Route: 048
  104. CETIRIZINE HYDROCHLORIDE [Suspect]
     Active Substance: CETIRIZINE HYDROCHLORIDE
     Route: 065
  105. CETIRIZINE HYDROCHLORIDE [Suspect]
     Active Substance: CETIRIZINE HYDROCHLORIDE
     Dosage: 10 MG, QD
     Route: 048
  106. CETIRIZINE HYDROCHLORIDE [Suspect]
     Active Substance: CETIRIZINE HYDROCHLORIDE
     Dosage: 10 MG, QD
     Route: 048
  107. CETIRIZINE HYDROCHLORIDE [Suspect]
     Active Substance: CETIRIZINE HYDROCHLORIDE
     Dosage: 25 MG, QD
     Route: 048
  108. CETIRIZINE HYDROCHLORIDE [Suspect]
     Active Substance: CETIRIZINE HYDROCHLORIDE
     Dosage: 25 MG, QD
     Route: 048
  109. CETIRIZINE HYDROCHLORIDE [Suspect]
     Active Substance: CETIRIZINE HYDROCHLORIDE
     Dosage: 10 MG, QD
     Route: 048
  110. CHLORAPREP [Suspect]
     Active Substance: CHLORHEXIDINE GLUCONATE\ISOPROPYL ALCOHOL
     Indication: Product used for unknown indication
     Route: 050
  111. CHLORHEXIDINE [Suspect]
     Active Substance: CHLORHEXIDINE
     Indication: Product used for unknown indication
     Route: 048
  112. CHLORHEXIDINE [Suspect]
     Active Substance: CHLORHEXIDINE
     Route: 002
  113. CHLORHEXIDINE [Suspect]
     Active Substance: CHLORHEXIDINE
     Route: 050
  114. CHLORHEXIDINE [Suspect]
     Active Substance: CHLORHEXIDINE
     Route: 065
  115. CHLORHEXIDINE GLUCONATE\ISOPROPYL ALCOHOL [Suspect]
     Active Substance: CHLORHEXIDINE GLUCONATE\ISOPROPYL ALCOHOL
     Indication: Product used for unknown indication
     Route: 048
  116. CHLORHEXIDINE GLUCONATE\ISOPROPYL ALCOHOL [Suspect]
     Active Substance: CHLORHEXIDINE GLUCONATE\ISOPROPYL ALCOHOL
     Route: 002
  117. CHLORHEXIDINE GLUCONATE\ISOPROPYL ALCOHOL [Suspect]
     Active Substance: CHLORHEXIDINE GLUCONATE\ISOPROPYL ALCOHOL
     Route: 050
  118. CIMZIA [Suspect]
     Active Substance: CERTOLIZUMAB PEGOL
     Indication: Rheumatoid arthritis
     Dosage: 1 DOSAGE FORM, QD
     Route: 058
  119. CIMZIA [Suspect]
     Active Substance: CERTOLIZUMAB PEGOL
     Route: 058
  120. CIMZIA [Suspect]
     Active Substance: CERTOLIZUMAB PEGOL
     Route: 058
  121. CIMZIA [Suspect]
     Active Substance: CERTOLIZUMAB PEGOL
     Route: 058
  122. CIMZIA [Suspect]
     Active Substance: CERTOLIZUMAB PEGOL
     Route: 058
  123. CIMZIA [Suspect]
     Active Substance: CERTOLIZUMAB PEGOL
     Route: 058
  124. CIMZIA [Suspect]
     Active Substance: CERTOLIZUMAB PEGOL
     Route: 058
  125. CIMZIA [Suspect]
     Active Substance: CERTOLIZUMAB PEGOL
     Route: 058
  126. CIMZIA [Suspect]
     Active Substance: CERTOLIZUMAB PEGOL
     Route: 065
  127. CIMZIA [Suspect]
     Active Substance: CERTOLIZUMAB PEGOL
     Dosage: 1 DOSAGE FORM QD (1 EVERY 1 DAYS)
     Route: 058
  128. CIMZIA [Suspect]
     Active Substance: CERTOLIZUMAB PEGOL
     Route: 058
  129. CORTISONE ACETATE [Suspect]
     Active Substance: CORTISONE ACETATE
     Indication: Rheumatoid arthritis
     Route: 003
  130. CORTISONE ACETATE [Suspect]
     Active Substance: CORTISONE ACETATE
     Route: 048
  131. CORTISONE ACETATE [Suspect]
     Active Substance: CORTISONE ACETATE
     Route: 048
  132. CORTISONE ACETATE [Suspect]
     Active Substance: CORTISONE ACETATE
     Route: 003
  133. CORTISONE ACETATE [Suspect]
     Active Substance: CORTISONE ACETATE
     Route: 048
  134. CORTISONE ACETATE [Suspect]
     Active Substance: CORTISONE ACETATE
     Route: 058
  135. CORTISONE ACETATE [Suspect]
     Active Substance: CORTISONE ACETATE
     Route: 058
  136. CORTISONE ACETATE [Suspect]
     Active Substance: CORTISONE ACETATE
     Route: 065
  137. CORTISONE ACETATE [Suspect]
     Active Substance: CORTISONE ACETATE
     Route: 050
  138. CORTISONE ACETATE [Suspect]
     Active Substance: CORTISONE ACETATE
     Route: 003
  139. CORTISONE ACETATE [Suspect]
     Active Substance: CORTISONE ACETATE
     Route: 048
  140. CORTISONE ACETATE [Suspect]
     Active Substance: CORTISONE ACETATE
     Route: 058
  141. CORTISONE ACETATE [Suspect]
     Active Substance: CORTISONE ACETATE
     Route: 048
  142. CORTISONE ACETATE [Suspect]
     Active Substance: CORTISONE ACETATE
     Route: 050
  143. CORTISONE ACETATE [Suspect]
     Active Substance: CORTISONE ACETATE
     Route: 048
  144. CORTISONE ACETATE [Suspect]
     Active Substance: CORTISONE ACETATE
     Indication: Rheumatoid arthritis
     Route: 048
  145. CORTISONE ACETATE [Suspect]
     Active Substance: CORTISONE ACETATE
     Route: 003
  146. CORTISONE ACETATE [Suspect]
     Active Substance: CORTISONE ACETATE
     Route: 058
  147. CORTISONE ACETATE [Suspect]
     Active Substance: CORTISONE ACETATE
     Route: 048
  148. CORTISONE ACETATE [Suspect]
     Active Substance: CORTISONE ACETATE
     Route: 065
  149. DESOXIMETASONE [Suspect]
     Active Substance: DESOXIMETASONE
     Indication: Rheumatoid arthritis
     Route: 003
  150. DESOXIMETASONE [Suspect]
     Active Substance: DESOXIMETASONE
     Route: 061
  151. DESOXIMETASONE [Suspect]
     Active Substance: DESOXIMETASONE
     Route: 048
  152. DESOXIMETASONE [Suspect]
     Active Substance: DESOXIMETASONE
     Route: 003
  153. DESOXIMETASONE [Suspect]
     Active Substance: DESOXIMETASONE
     Route: 003
  154. DESOXIMETASONE [Suspect]
     Active Substance: DESOXIMETASONE
     Route: 065
  155. DESOXIMETASONE [Suspect]
     Active Substance: DESOXIMETASONE
     Route: 061
  156. DESOXIMETASONE [Suspect]
     Active Substance: DESOXIMETASONE
     Route: 048
  157. DESOXIMETASONE [Suspect]
     Active Substance: DESOXIMETASONE
     Route: 058
  158. DESOXIMETASONE [Suspect]
     Active Substance: DESOXIMETASONE
     Route: 048
  159. DESOXIMETASONE [Suspect]
     Active Substance: DESOXIMETASONE
     Route: 003
  160. DESOXIMETASONE [Suspect]
     Active Substance: DESOXIMETASONE
     Route: 061
  161. DESOXIMETASONE [Suspect]
     Active Substance: DESOXIMETASONE
     Route: 042
  162. DESOXIMETASONE [Suspect]
     Active Substance: DESOXIMETASONE
     Route: 048
  163. DESOXIMETASONE [Suspect]
     Active Substance: DESOXIMETASONE
     Route: 058
  164. DESOXIMETASONE [Suspect]
     Active Substance: DESOXIMETASONE
     Route: 003
  165. DESOXIMETASONE [Suspect]
     Active Substance: DESOXIMETASONE
     Route: 048
  166. DESOXIMETASONE [Suspect]
     Active Substance: DESOXIMETASONE
     Route: 048
  167. DESOXIMETASONE [Suspect]
     Active Substance: DESOXIMETASONE
     Route: 058
  168. DESOXIMETASONE [Suspect]
     Active Substance: DESOXIMETASONE
     Route: 048
  169. DESOXIMETASONE [Suspect]
     Active Substance: DESOXIMETASONE
     Route: 058
  170. DESOXIMETASONE [Suspect]
     Active Substance: DESOXIMETASONE
     Route: 003
  171. DESOXIMETASONE [Suspect]
     Active Substance: DESOXIMETASONE
     Route: 065
  172. DESOXIMETASONE [Suspect]
     Active Substance: DESOXIMETASONE
     Route: 048
  173. DESOXIMETASONE [Suspect]
     Active Substance: DESOXIMETASONE
     Route: 003
  174. DESOXIMETASONE [Suspect]
     Active Substance: DESOXIMETASONE
     Route: 065
  175. DESOXIMETASONE [Suspect]
     Active Substance: DESOXIMETASONE
     Route: 003
  176. DESOXIMETASONE [Suspect]
     Active Substance: DESOXIMETASONE
     Route: 058
  177. DESOXIMETASONE [Suspect]
     Active Substance: DESOXIMETASONE
     Route: 048
  178. DESOXIMETASONE [Suspect]
     Active Substance: DESOXIMETASONE
     Route: 048
  179. DESOXIMETASONE [Suspect]
     Active Substance: DESOXIMETASONE
     Route: 061
  180. DESOXIMETASONE [Suspect]
     Active Substance: DESOXIMETASONE
     Route: 065
  181. DESOXIMETASONE [Suspect]
     Active Substance: DESOXIMETASONE
     Route: 058
  182. DESOXIMETASONE [Suspect]
     Active Substance: DESOXIMETASONE
     Route: 065
  183. DESOXIMETASONE [Suspect]
     Active Substance: DESOXIMETASONE
     Route: 065
  184. DESOXIMETASONE [Suspect]
     Active Substance: DESOXIMETASONE
     Route: 058
  185. DESOXIMETASONE [Suspect]
     Active Substance: DESOXIMETASONE
     Route: 061
  186. DESOXIMETASONE [Suspect]
     Active Substance: DESOXIMETASONE
     Route: 065
  187. DESOXIMETASONE [Suspect]
     Active Substance: DESOXIMETASONE
     Route: 048
  188. DESOXIMETASONE [Suspect]
     Active Substance: DESOXIMETASONE
     Route: 003
  189. DESOXIMETASONE [Suspect]
     Active Substance: DESOXIMETASONE
     Route: 061
  190. DESOXIMETASONE [Suspect]
     Active Substance: DESOXIMETASONE
     Route: 003
  191. DESOXIMETASONE [Suspect]
     Active Substance: DESOXIMETASONE
     Dosage: UNK UNK, QW
     Route: 058
  192. DESOXIMETASONE [Suspect]
     Active Substance: DESOXIMETASONE
     Route: 048
  193. DESOXIMETASONE [Suspect]
     Active Substance: DESOXIMETASONE
     Route: 048
  194. DESOXIMETASONE [Suspect]
     Active Substance: DESOXIMETASONE
     Route: 048
  195. DESOXIMETASONE [Suspect]
     Active Substance: DESOXIMETASONE
     Route: 058
  196. DESOXIMETASONE [Suspect]
     Active Substance: DESOXIMETASONE
     Dosage: 25 MG QW (1 EVERY 1 WEEKS)
     Route: 048
  197. DESOXIMETASONE [Suspect]
     Active Substance: DESOXIMETASONE
     Route: 003
  198. DICLOFENAC DIETHYLAMINE [Suspect]
     Active Substance: DICLOFENAC DIETHYLAMINE
     Indication: Product used for unknown indication
     Route: 065
  199. DOXYCYCLINE [Suspect]
     Active Substance: DOXYCYCLINE
     Indication: Product used for unknown indication
     Route: 065
  200. DOXYCYCLINE [Suspect]
     Active Substance: DOXYCYCLINE
     Route: 065
  201. ENBREL [Suspect]
     Active Substance: ETANERCEPT
     Indication: Rheumatoid arthritis
     Route: 058
  202. ENBREL [Suspect]
     Active Substance: ETANERCEPT
     Indication: Psoriatic arthropathy
     Dosage: 20 MG, QW
     Route: 058
  203. ENBREL [Suspect]
     Active Substance: ETANERCEPT
     Dosage: 50 MG, QW
     Route: 058
  204. ENBREL [Suspect]
     Active Substance: ETANERCEPT
     Dosage: 20 MG, QW
     Route: 058
  205. ENBREL [Suspect]
     Active Substance: ETANERCEPT
     Route: 058
  206. FLUMETHASONE PIVALATE [Suspect]
     Active Substance: FLUMETHASONE PIVALATE
     Indication: Rheumatoid arthritis
     Route: 058
  207. FOLIC ACID [Suspect]
     Active Substance: FOLIC ACID
     Indication: Rheumatoid arthritis
     Route: 065
  208. FOLIC ACID [Suspect]
     Active Substance: FOLIC ACID
     Route: 065
  209. FOLIC ACID [Suspect]
     Active Substance: FOLIC ACID
     Dosage: 5 MG, QD
     Route: 048
  210. FOLIC ACID [Suspect]
     Active Substance: FOLIC ACID
     Route: 065
  211. FOLIC ACID [Suspect]
     Active Substance: FOLIC ACID
     Route: 065
  212. FOLIC ACID [Suspect]
     Active Substance: FOLIC ACID
     Route: 065
  213. FOLIC ACID [Suspect]
     Active Substance: FOLIC ACID
     Route: 058
  214. FOLIC ACID [Suspect]
     Active Substance: FOLIC ACID
     Route: 048
  215. FOLIC ACID [Suspect]
     Active Substance: FOLIC ACID
     Route: 058
  216. FOLIC ACID [Suspect]
     Active Substance: FOLIC ACID
     Route: 065
  217. FOLIC ACID [Suspect]
     Active Substance: FOLIC ACID
     Route: 058
  218. FOLIC ACID [Suspect]
     Active Substance: FOLIC ACID
     Route: 048
  219. FOLIC ACID [Suspect]
     Active Substance: FOLIC ACID
     Route: 065
  220. FOLIC ACID [Suspect]
     Active Substance: FOLIC ACID
     Route: 048
  221. FOLIC ACID [Suspect]
     Active Substance: FOLIC ACID
     Route: 065
  222. FOSAMAX [Suspect]
     Active Substance: ALENDRONATE SODIUM
     Indication: Rheumatoid arthritis
     Route: 065
  223. FOSAMAX [Suspect]
     Active Substance: ALENDRONATE SODIUM
     Indication: Rheumatoid arthritis
     Route: 048
  224. FOSAMAX [Suspect]
     Active Substance: ALENDRONATE SODIUM
     Route: 048
  225. GOLIMUMAB [Suspect]
     Active Substance: GOLIMUMAB
     Indication: Rheumatoid arthritis
     Route: 065
  226. GOLIMUMAB [Suspect]
     Active Substance: GOLIMUMAB
     Route: 058
  227. GOLIMUMAB [Suspect]
     Active Substance: GOLIMUMAB
     Route: 058
  228. GOLIMUMAB [Suspect]
     Active Substance: GOLIMUMAB
     Route: 058
  229. GOLIMUMAB [Suspect]
     Active Substance: GOLIMUMAB
     Route: 052
  230. GOLIMUMAB [Suspect]
     Active Substance: GOLIMUMAB
     Route: 042
  231. HUMIRA [Suspect]
     Active Substance: ADALIMUMAB
     Indication: Rheumatoid arthritis
     Route: 058
  232. HUMIRA [Suspect]
     Active Substance: ADALIMUMAB
     Indication: Psoriatic arthropathy
     Route: 058
  233. HUMIRA [Suspect]
     Active Substance: ADALIMUMAB
     Route: 058
  234. HUMIRA [Suspect]
     Active Substance: ADALIMUMAB
     Route: 058
  235. HUMIRA [Suspect]
     Active Substance: ADALIMUMAB
     Route: 058
  236. HUMIRA [Suspect]
     Active Substance: ADALIMUMAB
     Route: 058
  237. HUMIRA [Suspect]
     Active Substance: ADALIMUMAB
     Route: 065
  238. HUMIRA [Suspect]
     Active Substance: ADALIMUMAB
     Route: 065
  239. HUMIRA [Suspect]
     Active Substance: ADALIMUMAB
     Route: 058
  240. HUMIRA [Suspect]
     Active Substance: ADALIMUMAB
     Route: 058
  241. HUMIRA [Suspect]
     Active Substance: ADALIMUMAB
     Route: 058
  242. HUMIRA [Suspect]
     Active Substance: ADALIMUMAB
     Route: 058
  243. HUMIRA [Suspect]
     Active Substance: ADALIMUMAB
     Route: 058
  244. HYDROCORTISONE [Suspect]
     Active Substance: HYDROCORTISONE
     Indication: Rheumatoid arthritis
     Route: 048
  245. HYDROCORTISONE [Suspect]
     Active Substance: HYDROCORTISONE
     Route: 065
  246. HYDROCORTISONE [Suspect]
     Active Substance: HYDROCORTISONE
     Route: 058
  247. HYDROCORTISONE [Suspect]
     Active Substance: HYDROCORTISONE
     Route: 050
  248. HYDROCORTISONE [Suspect]
     Active Substance: HYDROCORTISONE
     Route: 003
  249. HYDROCORTISONE [Suspect]
     Active Substance: HYDROCORTISONE
     Route: 048
  250. HYDROCORTISONE [Suspect]
     Active Substance: HYDROCORTISONE
     Route: 065
  251. HYDROCORTISONE [Suspect]
     Active Substance: HYDROCORTISONE
     Route: 003
  252. HYDROCORTISONE [Suspect]
     Active Substance: HYDROCORTISONE
     Route: 050
  253. HYDROCORTISONE [Suspect]
     Active Substance: HYDROCORTISONE
     Route: 058
  254. HYDROCORTISONE BUTYRATE [Suspect]
     Active Substance: HYDROCORTISONE BUTYRATE
     Indication: Rheumatoid arthritis
     Route: 058
  255. HYDROCORTISONE SODIUM SUCCINATE [Suspect]
     Active Substance: HYDROCORTISONE SODIUM SUCCINATE
     Indication: Rheumatoid arthritis
     Route: 065
  256. HYDROCORTISONE SODIUM SUCCINATE [Suspect]
     Active Substance: HYDROCORTISONE SODIUM SUCCINATE
     Route: 048
  257. HYDROCORTISONE SODIUM SUCCINATE [Suspect]
     Active Substance: HYDROCORTISONE SODIUM SUCCINATE
     Route: 048
  258. HYDROCORTISONE SODIUM SUCCINATE [Suspect]
     Active Substance: HYDROCORTISONE SODIUM SUCCINATE
     Indication: Rheumatoid arthritis
     Route: 048
  259. HYDROXYCHLOROQUINE [Suspect]
     Active Substance: HYDROXYCHLOROQUINE
     Indication: Rheumatoid arthritis
     Dosage: 400 MG, QD
     Route: 065
  260. HYDROXYCHLOROQUINE [Suspect]
     Active Substance: HYDROXYCHLOROQUINE
     Dosage: 400 MG, QD
     Route: 065
  261. HYDROXYCHLOROQUINE SULFATE [Suspect]
     Active Substance: HYDROXYCHLOROQUINE SULFATE
     Indication: Systemic lupus erythematosus
     Route: 048
  262. HYDROXYCHLOROQUINE SULFATE [Suspect]
     Active Substance: HYDROXYCHLOROQUINE SULFATE
     Indication: Rheumatoid arthritis
     Dosage: 4000 MG, QD
     Route: 058
  263. HYDROXYCHLOROQUINE SULFATE [Suspect]
     Active Substance: HYDROXYCHLOROQUINE SULFATE
     Dosage: 40 MG, QD
     Route: 065
  264. HYDROXYCHLOROQUINE SULFATE [Suspect]
     Active Substance: HYDROXYCHLOROQUINE SULFATE
     Route: 048
  265. INFLIXIMAB [Suspect]
     Active Substance: INFLIXIMAB
     Indication: Rheumatoid arthritis
     Route: 042
  266. INFLIXIMAB [Suspect]
     Active Substance: INFLIXIMAB
     Route: 042
  267. ISOPROPYL ALCOHOL [Suspect]
     Active Substance: ISOPROPYL ALCOHOL
     Indication: Product used for unknown indication
     Route: 050
  268. ISOPROPYL ALCOHOL [Suspect]
     Active Substance: ISOPROPYL ALCOHOL
     Route: 050
  269. ISOPROPYL ALCOHOL [Suspect]
     Active Substance: ISOPROPYL ALCOHOL
     Route: 050
  270. LYRICA [Suspect]
     Active Substance: PREGABALIN
     Indication: Product used for unknown indication
     Route: 065
  271. NAPROXEN SODIUM [Suspect]
     Active Substance: NAPROXEN SODIUM
     Indication: Rheumatoid arthritis
     Route: 065
  272. NAPROXEN SODIUM [Suspect]
     Active Substance: NAPROXEN SODIUM
     Route: 065
  273. NAPROXEN SODIUM [Suspect]
     Active Substance: NAPROXEN SODIUM
     Dosage: 500 MG, BID
     Route: 065
  274. NAPROXEN SODIUM [Suspect]
     Active Substance: NAPROXEN SODIUM
     Route: 065
  275. NAPROXEN SODIUM [Suspect]
     Active Substance: NAPROXEN SODIUM
     Dosage: 500 MG, BID
     Route: 065
  276. NEOMYCIN [Suspect]
     Active Substance: NEOMYCIN
     Indication: Product used for unknown indication
     Route: 049
  277. ORENCIA [Suspect]
     Active Substance: ABATACEPT
     Indication: Rheumatoid arthritis
     Route: 058
  278. ORENCIA [Suspect]
     Active Substance: ABATACEPT
     Route: 042
  279. ORENCIA [Suspect]
     Active Substance: ABATACEPT
     Route: 058
  280. ORENCIA [Suspect]
     Active Substance: ABATACEPT
     Route: 058
  281. ORENCIA [Suspect]
     Active Substance: ABATACEPT
     Route: 058
  282. ORENCIA [Suspect]
     Active Substance: ABATACEPT
     Route: 058
  283. ORENCIA [Suspect]
     Active Substance: ABATACEPT
     Route: 058
  284. ORENCIA [Suspect]
     Active Substance: ABATACEPT
     Route: 065
  285. ORENCIA [Suspect]
     Active Substance: ABATACEPT
     Route: 065
  286. ORENCIA [Suspect]
     Active Substance: ABATACEPT
     Route: 065
  287. ORENCIA [Suspect]
     Active Substance: ABATACEPT
     Route: 058
  288. ORENCIA [Suspect]
     Active Substance: ABATACEPT
     Route: 058
  289. ORENCIA [Suspect]
     Active Substance: ABATACEPT
     Route: 058
  290. ORENCIA [Suspect]
     Active Substance: ABATACEPT
     Route: 065
  291. OTEZLA [Suspect]
     Active Substance: APREMILAST
     Indication: Product used for unknown indication
     Route: 048
  292. OTEZLA [Suspect]
     Active Substance: APREMILAST
     Dosage: 3 MG, BID (2 EVERY 1 DAYS)
     Route: 048
  293. OTEZLA [Suspect]
     Active Substance: APREMILAST
     Route: 048
  294. OXYCODONE TEREPHTHALATE [Suspect]
     Active Substance: OXYCODONE TEREPHTHALATE
     Indication: Product used for unknown indication
     Route: 065
  295. OXYCODONE TEREPHTHALATE [Suspect]
     Active Substance: OXYCODONE TEREPHTHALATE
     Route: 016
  296. PERIOGARD [Suspect]
     Active Substance: CHLORHEXIDINE GLUCONATE
     Indication: Product used for unknown indication
     Route: 048
  297. PERIOGARD [Suspect]
     Active Substance: CHLORHEXIDINE GLUCONATE
     Route: 002
  298. PERIOGARD [Suspect]
     Active Substance: CHLORHEXIDINE GLUCONATE
     Route: 016
  299. PERIOGARD [Suspect]
     Active Substance: CHLORHEXIDINE GLUCONATE
     Route: 016
  300. PHTHALYLSULFATHIAZOLE [Suspect]
     Active Substance: PHTHALYLSULFATHIAZOLE
     Indication: Rheumatoid arthritis
     Route: 016
  301. PHTHALYLSULFATHIAZOLE [Suspect]
     Active Substance: PHTHALYLSULFATHIAZOLE
     Dosage: 1000 MG, BID
     Route: 048
  302. PHTHALYLSULFATHIAZOLE [Suspect]
     Active Substance: PHTHALYLSULFATHIAZOLE
     Route: 048
  303. PHTHALYLSULFATHIAZOLE [Suspect]
     Active Substance: PHTHALYLSULFATHIAZOLE
     Route: 048
  304. PHTHALYLSULFATHIAZOLE [Suspect]
     Active Substance: PHTHALYLSULFATHIAZOLE
     Route: 065
  305. PHTHALYLSULFATHIAZOLE [Suspect]
     Active Substance: PHTHALYLSULFATHIAZOLE
     Route: 065
  306. PHTHALYLSULFATHIAZOLE [Suspect]
     Active Substance: PHTHALYLSULFATHIAZOLE
     Route: 042
  307. PHTHALYLSULFATHIAZOLE [Suspect]
     Active Substance: PHTHALYLSULFATHIAZOLE
     Route: 048
  308. PHTHALYLSULFATHIAZOLE [Suspect]
     Active Substance: PHTHALYLSULFATHIAZOLE
     Route: 048
  309. PHTHALYLSULFATHIAZOLE [Suspect]
     Active Substance: PHTHALYLSULFATHIAZOLE
     Dosage: 1000 MG BID (2 EVERY 1 DAY)
     Route: 065
  310. PHTHALYLSULFATHIAZOLE [Suspect]
     Active Substance: PHTHALYLSULFATHIAZOLE
     Route: 065
  311. PREDNISONE [Suspect]
     Active Substance: PREDNISONE
     Indication: Rheumatoid arthritis
     Route: 048
  312. PREDNISONE [Suspect]
     Active Substance: PREDNISONE
     Indication: Psoriatic arthropathy
     Route: 048
  313. PREDNISONE [Suspect]
     Active Substance: PREDNISONE
     Indication: Condition aggravated
     Route: 048
  314. PREDNISONE [Suspect]
     Active Substance: PREDNISONE
     Route: 065
  315. PREDNISONE [Suspect]
     Active Substance: PREDNISONE
     Route: 065
  316. PREDNISONE [Suspect]
     Active Substance: PREDNISONE
     Route: 065
  317. PREDNISONE [Suspect]
     Active Substance: PREDNISONE
     Route: 065
  318. PREDNISONE [Suspect]
     Active Substance: PREDNISONE
     Route: 048
  319. PREDNISONE [Suspect]
     Active Substance: PREDNISONE
     Route: 065
  320. PREDNISONE [Suspect]
     Active Substance: PREDNISONE
     Route: 065
  321. PREDNISONE [Suspect]
     Active Substance: PREDNISONE
     Route: 065
  322. PREDNISONE [Suspect]
     Active Substance: PREDNISONE
     Route: 048
  323. PREDNISONE [Suspect]
     Active Substance: PREDNISONE
     Route: 048
  324. PSEUDOEPHEDRINE [Suspect]
     Active Substance: PSEUDOEPHEDRINE
     Indication: Product used for unknown indication
     Route: 065
  325. PSEUDOEPHEDRINE\TRIPROLIDINE [Suspect]
     Active Substance: PSEUDOEPHEDRINE\TRIPROLIDINE
     Indication: Rheumatoid arthritis
     Route: 065
  326. PSEUDOEPHEDRINE\TRIPROLIDINE [Suspect]
     Active Substance: PSEUDOEPHEDRINE\TRIPROLIDINE
     Route: 065
  327. PSEUDOEPHEDRINE\TRIPROLIDINE [Suspect]
     Active Substance: PSEUDOEPHEDRINE\TRIPROLIDINE
     Route: 065
  328. PSEUDOEPHEDRINE\TRIPROLIDINE [Suspect]
     Active Substance: PSEUDOEPHEDRINE\TRIPROLIDINE
     Route: 065
  329. PSEUDOEPHEDRINE\TRIPROLIDINE [Suspect]
     Active Substance: PSEUDOEPHEDRINE\TRIPROLIDINE
     Route: 065
  330. CETIRIZINE HYDROCHLORIDE\PSEUDOEPHEDRINE HYDROCHLORIDE [Suspect]
     Active Substance: CETIRIZINE HYDROCHLORIDE\PSEUDOEPHEDRINE HYDROCHLORIDE
     Indication: Rheumatoid arthritis
     Route: 065
  331. CETIRIZINE HYDROCHLORIDE\PSEUDOEPHEDRINE HYDROCHLORIDE [Suspect]
     Active Substance: CETIRIZINE HYDROCHLORIDE\PSEUDOEPHEDRINE HYDROCHLORIDE
     Route: 065
  332. CETIRIZINE HYDROCHLORIDE\PSEUDOEPHEDRINE HYDROCHLORIDE [Suspect]
     Active Substance: CETIRIZINE HYDROCHLORIDE\PSEUDOEPHEDRINE HYDROCHLORIDE
     Route: 048
  333. CETIRIZINE HYDROCHLORIDE\PSEUDOEPHEDRINE HYDROCHLORIDE [Suspect]
     Active Substance: CETIRIZINE HYDROCHLORIDE\PSEUDOEPHEDRINE HYDROCHLORIDE
     Route: 065
  334. CETIRIZINE HYDROCHLORIDE\PSEUDOEPHEDRINE HYDROCHLORIDE [Suspect]
     Active Substance: CETIRIZINE HYDROCHLORIDE\PSEUDOEPHEDRINE HYDROCHLORIDE
     Route: 048
  335. REMICADE [Suspect]
     Active Substance: INFLIXIMAB
     Indication: Rheumatoid arthritis
     Route: 065
  336. REMICADE [Suspect]
     Active Substance: INFLIXIMAB
     Route: 042
  337. RITUXAN [Suspect]
     Active Substance: RITUXIMAB
     Indication: Rheumatoid arthritis
     Route: 042
  338. RITUXAN [Suspect]
     Active Substance: RITUXIMAB
     Route: 058
  339. RITUXAN [Suspect]
     Active Substance: RITUXIMAB
     Route: 041
  340. SULFASALAZINE [Suspect]
     Active Substance: SULFASALAZINE
     Indication: Rheumatoid arthritis
     Route: 065
  341. SULFASALAZINE [Suspect]
     Active Substance: SULFASALAZINE
     Route: 048
  342. SULFASALAZINE [Suspect]
     Active Substance: SULFASALAZINE
     Route: 048
  343. SULFASALAZINE [Suspect]
     Active Substance: SULFASALAZINE
     Route: 048
  344. SULFASALAZINE [Suspect]
     Active Substance: SULFASALAZINE
     Dosage: 1 G, QD
     Route: 048
  345. SULFASALAZINE [Suspect]
     Active Substance: SULFASALAZINE
     Dosage: 1 G, BID
     Route: 065
  346. SULFASALAZINE [Suspect]
     Active Substance: SULFASALAZINE
     Dosage: 1000 MG, BID
     Route: 048
  347. SULFASALAZINE [Suspect]
     Active Substance: SULFASALAZINE
     Route: 048
  348. SULFASALAZINE [Suspect]
     Active Substance: SULFASALAZINE
     Route: 048
  349. SIMPONI [Suspect]
     Active Substance: GOLIMUMAB
     Indication: Rheumatoid arthritis
     Route: 052
  350. SIMPONI [Suspect]
     Active Substance: GOLIMUMAB
     Indication: Psoriatic arthropathy
     Route: 042
  351. SIMPONI [Suspect]
     Active Substance: GOLIMUMAB
     Route: 058
  352. SIMPONI [Suspect]
     Active Substance: GOLIMUMAB
     Route: 058
  353. SIMPONI [Suspect]
     Active Substance: GOLIMUMAB
     Route: 058
  354. SIMPONI [Suspect]
     Active Substance: GOLIMUMAB
     Route: 065
  355. SIMPONI [Suspect]
     Active Substance: GOLIMUMAB
     Route: 058
  356. STELARA [Suspect]
     Active Substance: USTEKINUMAB
     Indication: Product used for unknown indication
     Route: 065
  357. STELARA [Suspect]
     Active Substance: USTEKINUMAB
     Route: 065
  358. STELARA [Suspect]
     Active Substance: USTEKINUMAB
     Route: 058
  359. STELARA [Suspect]
     Active Substance: USTEKINUMAB
     Route: 058
  360. STELARA [Suspect]
     Active Substance: USTEKINUMAB
     Route: 042
  361. STELARA [Suspect]
     Active Substance: USTEKINUMAB
     Route: 042
  362. STELARA [Suspect]
     Active Substance: USTEKINUMAB
     Route: 058
  363. SULFAMETHOXAZOLE [Suspect]
     Active Substance: SULFAMETHOXAZOLE
     Indication: Product used for unknown indication
     Route: 065
  364. SULFAMETHOXAZOLE\TRIMETHOPRIM [Suspect]
     Active Substance: SULFAMETHOXAZOLE\TRIMETHOPRIM
     Indication: Product used for unknown indication
     Route: 065
  365. SULFASALAZINE [Suspect]
     Active Substance: SULFASALAZINE
     Indication: Rheumatoid arthritis
     Route: 048
  366. SULFASALAZINE [Suspect]
     Active Substance: SULFASALAZINE
     Route: 048
  367. SULFASALAZINE [Suspect]
     Active Substance: SULFASALAZINE
     Route: 048
  368. SULFASALAZINE [Suspect]
     Active Substance: SULFASALAZINE
     Route: 048
  369. SULFASALAZINE [Suspect]
     Active Substance: SULFASALAZINE
     Route: 048
  370. SULFASALAZINE [Suspect]
     Active Substance: SULFASALAZINE
     Dosage: 1 G, QD
     Route: 065
  371. SULFASALAZINE [Suspect]
     Active Substance: SULFASALAZINE
     Route: 065
  372. SULFASALAZINE [Suspect]
     Active Substance: SULFASALAZINE
     Route: 065
  373. SULFASALAZINE [Suspect]
     Active Substance: SULFASALAZINE
     Dosage: 1 G, BID
     Route: 065
  374. SULFASALAZINE [Suspect]
     Active Substance: SULFASALAZINE
     Route: 048
  375. SULFASALAZINE [Suspect]
     Active Substance: SULFASALAZINE
     Route: 048
  376. SULFASALAZINE [Suspect]
     Active Substance: SULFASALAZINE
     Route: 048
  377. SULFASALAZINE [Suspect]
     Active Substance: SULFASALAZINE
     Route: 065
  378. SULFASALAZINE [Suspect]
     Active Substance: SULFASALAZINE
     Route: 065
  379. SULFASALAZINE [Suspect]
     Active Substance: SULFASALAZINE
     Route: 065
  380. SULFASALAZINE [Suspect]
     Active Substance: SULFASALAZINE
     Route: 048
  381. SULFASALAZINE [Suspect]
     Active Substance: SULFASALAZINE
     Route: 048
  382. SULFASALAZINE [Suspect]
     Active Substance: SULFASALAZINE
     Route: 048
  383. SULFASALAZINE [Suspect]
     Active Substance: SULFASALAZINE
     Route: 048
  384. SULFASALAZINE [Suspect]
     Active Substance: SULFASALAZINE
     Route: 048
  385. SULFASALAZINE [Suspect]
     Active Substance: SULFASALAZINE
     Dosage: 500 MG, QD
     Route: 048
  386. SULFASALAZINE [Suspect]
     Active Substance: SULFASALAZINE
     Route: 065
  387. SULFASALAZINE [Suspect]
     Active Substance: SULFASALAZINE
     Route: 048
  388. SULFASALAZINE [Suspect]
     Active Substance: SULFASALAZINE
     Route: 048
  389. SULFASALAZINE [Suspect]
     Active Substance: SULFASALAZINE
     Route: 048
  390. SULFASALAZINE [Suspect]
     Active Substance: SULFASALAZINE
     Route: 048
  391. SULFASALAZINE [Suspect]
     Active Substance: SULFASALAZINE
     Route: 048
  392. SULFASALAZINE [Suspect]
     Active Substance: SULFASALAZINE
     Route: 048
  393. SULFASALAZINE [Suspect]
     Active Substance: SULFASALAZINE
     Route: 048
  394. SULFASALAZINE [Suspect]
     Active Substance: SULFASALAZINE
     Route: 048
  395. SULFASALAZINE [Suspect]
     Active Substance: SULFASALAZINE
     Route: 048
  396. SULFASALAZINE [Suspect]
     Active Substance: SULFASALAZINE
     Route: 048
  397. SULFASALAZINE [Suspect]
     Active Substance: SULFASALAZINE
     Route: 048
  398. SULFASALAZINE [Suspect]
     Active Substance: SULFASALAZINE
     Route: 048
  399. SULFASALAZINE [Suspect]
     Active Substance: SULFASALAZINE
     Route: 048
  400. SULFASALAZINE [Suspect]
     Active Substance: SULFASALAZINE
     Route: 048
  401. SULFASALAZINE [Suspect]
     Active Substance: SULFASALAZINE
     Route: 048
  402. TOCILIZUMAB [Suspect]
     Active Substance: TOCILIZUMAB
     Indication: Rheumatoid arthritis
     Route: 058
  403. TOFACITINIB CITRATE [Suspect]
     Active Substance: TOFACITINIB CITRATE
     Indication: Rheumatoid arthritis
     Route: 065
  404. TOFACITINIB CITRATE [Suspect]
     Active Substance: TOFACITINIB CITRATE
     Indication: Psoriatic arthropathy
     Dosage: 5 MG, QW
     Route: 048
  405. TRAMADOL HYDROCHLORIDE [Suspect]
     Active Substance: TRAMADOL HYDROCHLORIDE
     Indication: Product used for unknown indication
     Route: 065
  406. TRIAMCINOLONE ACETONIDE [Suspect]
     Active Substance: TRIAMCINOLONE ACETONIDE
     Indication: Rheumatoid arthritis
     Route: 013
  407. USTEKINUMAB [Suspect]
     Active Substance: USTEKINUMAB
     Indication: Psoriatic arthropathy
     Route: 065
  408. USTEKINUMAB [Suspect]
     Active Substance: USTEKINUMAB
     Route: 058
  409. VITAMIN C [Suspect]
     Active Substance: ASCORBIC ACID
     Indication: Product used for unknown indication
     Route: 016
  410. VITAMIN C [Suspect]
     Active Substance: ASCORBIC ACID
     Indication: Product used for unknown indication
     Route: 065
  411. VITAMIN D3 [Suspect]
     Active Substance: CHOLECALCIFEROL
     Indication: Product used for unknown indication
     Route: 065
  412. PREDNISONE [Suspect]
     Active Substance: PREDNISONE
     Indication: Product used for unknown indication
     Route: 048
  413. XELJANZ [Suspect]
     Active Substance: TOFACITINIB CITRATE
     Indication: Rheumatoid arthritis
     Route: 048
  414. XELJANZ [Suspect]
     Active Substance: TOFACITINIB CITRATE
     Route: 048
  415. XELJANZ [Suspect]
     Active Substance: TOFACITINIB CITRATE
     Route: 065
  416. XELJANZ [Suspect]
     Active Substance: TOFACITINIB CITRATE
     Route: 065
  417. XELJANZ [Suspect]
     Active Substance: TOFACITINIB CITRATE
     Route: 065
  418. XELJANZ [Suspect]
     Active Substance: TOFACITINIB CITRATE
     Route: 048
  419. XELJANZ [Suspect]
     Active Substance: TOFACITINIB CITRATE
     Dosage: 10 MG, QD (1 EVERY 1 DAYS)
     Route: 048
  420. XELJANZ [Suspect]
     Active Substance: TOFACITINIB CITRATE
     Route: 065
  421. CHOLECALCIFEROL [Suspect]
     Active Substance: CHOLECALCIFEROL
     Indication: Product used for unknown indication
     Route: 065
  422. CORTISONE [Suspect]
     Active Substance: CORTISONE
     Indication: Rheumatoid arthritis
     Route: 003
  423. CORTISONE [Suspect]
     Active Substance: CORTISONE
     Route: 048
  424. CORTISONE [Suspect]
     Active Substance: CORTISONE
     Route: 003
  425. CORTISONE [Suspect]
     Active Substance: CORTISONE
     Route: 003
  426. CORTISONE [Suspect]
     Active Substance: CORTISONE
     Route: 058
  427. CORTISONE [Suspect]
     Active Substance: CORTISONE
     Route: 048
  428. CORTISONE [Suspect]
     Active Substance: CORTISONE
     Route: 048
  429. CORTISONE [Suspect]
     Active Substance: CORTISONE
     Route: 058
  430. CORTISONE [Suspect]
     Active Substance: CORTISONE
     Route: 061
  431. EMEND [Suspect]
     Active Substance: APREPITANT
     Indication: Product used for unknown indication
     Route: 042
  432. EMEND [Suspect]
     Active Substance: APREPITANT
     Route: 065
  433. EMEND [Suspect]
     Active Substance: APREPITANT
     Route: 048
  434. HYDROCORTISONE BUTYRATE [Suspect]
     Active Substance: HYDROCORTISONE BUTYRATE
     Indication: Rheumatoid arthritis
     Route: 058
  435. FLUMETHASONE PIVALATE [Suspect]
     Active Substance: FLUMETHASONE PIVALATE
     Indication: Product used for unknown indication
     Route: 058
  436. CETIRIZINE HYDROCHLORIDE [Suspect]
     Active Substance: CETIRIZINE HYDROCHLORIDE
     Indication: Product used for unknown indication
     Route: 048
  437. DOXYCYCLINE HYCLATE [Suspect]
     Active Substance: DOXYCYCLINE HYCLATE
     Indication: Product used for unknown indication
     Route: 065
  438. ALENDRONATE SODIUM [Suspect]
     Active Substance: ALENDRONATE SODIUM
     Indication: Rheumatoid arthritis
     Route: 065
  439. DICLOFENAC SODIUM [Suspect]
     Active Substance: DICLOFENAC SODIUM
     Indication: Product used for unknown indication
     Dosage: 50 MG, QD
     Route: 058
  440. DICLOFENAC SODIUM [Suspect]
     Active Substance: DICLOFENAC SODIUM
     Route: 048
  441. DICLOFENAC SODIUM [Suspect]
     Active Substance: DICLOFENAC SODIUM
     Route: 047
  442. HYDROCORTISONE [Suspect]
     Active Substance: HYDROCORTISONE
     Indication: Rheumatoid arthritis
     Route: 050
  443. HYDROCORTISONE [Suspect]
     Active Substance: HYDROCORTISONE
     Route: 058
  444. HYDROCORTISONE [Suspect]
     Active Substance: HYDROCORTISONE
     Route: 048
  445. HYDROCORTISONE [Suspect]
     Active Substance: HYDROCORTISONE
     Route: 003
  446. CALTRATE [Suspect]
     Active Substance: CALCIUM CARBONATE
     Indication: Product used for unknown indication
     Route: 065
  447. CHLORHEXIDINE GLUCONATE [Suspect]
     Active Substance: CHLORHEXIDINE GLUCONATE
     Indication: Product used for unknown indication
     Route: 048
  448. CHLORHEXIDINE GLUCONATE [Suspect]
     Active Substance: CHLORHEXIDINE GLUCONATE
     Route: 002
  449. CHLORHEXIDINE GLUCONATE [Suspect]
     Active Substance: CHLORHEXIDINE GLUCONATE
     Route: 050
  450. CHLORHEXIDINE GLUCONATE [Suspect]
     Active Substance: CHLORHEXIDINE GLUCONATE
     Route: 065
  451. COD LIVER OIL [Suspect]
     Active Substance: COD LIVER OIL
     Indication: Product used for unknown indication
     Route: 065
  452. TUMS [Suspect]
     Active Substance: CALCIUM CARBONATE
     Indication: Product used for unknown indication
     Route: 065
  453. ACETAMINOPHEN\CAFFEINE\CODEINE PHOSPHATE [Suspect]
     Active Substance: ACETAMINOPHEN\CAFFEINE\CODEINE PHOSPHATE
     Indication: Rheumatoid arthritis
     Route: 065
  454. DICLOFENAC POTASSIUM [Suspect]
     Active Substance: DICLOFENAC POTASSIUM
     Indication: Product used for unknown indication
     Route: 065

REACTIONS (27)
  - C-reactive protein [Fatal]
  - Off label use [Fatal]
  - C-reactive protein increased [Fatal]
  - Drug tolerance decreased [Fatal]
  - Prescribed underdose [Fatal]
  - Arthritis [Fatal]
  - Joint stiffness [Fatal]
  - Tachycardia [Fatal]
  - Therapeutic product effect incomplete [Fatal]
  - Red blood cell sedimentation rate increased [Fatal]
  - Lupus-like syndrome [Fatal]
  - Joint dislocation [Fatal]
  - Thrombocytopenia [Fatal]
  - Underdose [Fatal]
  - Drug tolerance decreased [Fatal]
  - Lower limb fracture [Fatal]
  - Gait inability [Fatal]
  - Deep vein thrombosis postoperative [Fatal]
  - Respiratory disorder [Fatal]
  - Muscle spasticity [Fatal]
  - Swollen joint count [Fatal]
  - Swollen joint count increased [Fatal]
  - Visual impairment [Fatal]
  - Vomiting [Fatal]
  - Weight fluctuation [Fatal]
  - White blood cell count increased [Fatal]
  - X-ray abnormal [Fatal]
